FAERS Safety Report 12966518 (Version 1)
Quarter: 2016Q4

REPORT INFORMATION
  Report Type: Spontaneous
  Country: US (occurrence: US)
  Receive Date: 20161122
  Receipt Date: 20161122
  Transmission Date: 20170207
  Serious: No
  Sender: FDA-Public Use
  Company Number: US-B.I. PHARMACEUTICALS,INC./RIDGEFIELD-2016-BI-079893

PATIENT
  Age: 79 Year
  Sex: Female

DRUGS (2)
  1. VALIUM [Concomitant]
     Active Substance: DIAZEPAM
     Route: 048
  2. ZANTAC [Suspect]
     Active Substance: RANITIDINE HYDROCHLORIDE
     Indication: DYSPEPSIA
     Route: 048
     Dates: start: 20161028, end: 20161117

REACTIONS (2)
  - Incorrect drug administration duration [Not Recovered/Not Resolved]
  - Drug ineffective [Recovered/Resolved]

NARRATIVE: CASE EVENT DATE: 20161028
